FAERS Safety Report 16442001 (Version 1)
Quarter: 2019Q2

REPORT INFORMATION
  Report Type: Report from Study
  Country: None (occurrence: US)
  Receive Date: 20190617
  Receipt Date: 20190617
  Transmission Date: 20190711
  Serious: No
  Sender: FDA-Public Use
  Company Number: US-US WORLDMEDS, LLC-USW201811-001675

PATIENT
  Age: 86 Year
  Sex: Female
  Weight: 107.95 kg

DRUGS (9)
  1. APOKYN [Suspect]
     Active Substance: APOMORPHINE HYDROCHLORIDE
     Route: 058
  2. TIGAN [Concomitant]
     Active Substance: TRIMETHOBENZAMIDE HYDROCHLORIDE
     Indication: ANTIEMETIC SUPPORTIVE CARE
     Dates: start: 20181106
  3. APOKYN [Suspect]
     Active Substance: APOMORPHINE HYDROCHLORIDE
     Indication: PARKINSON^S DISEASE
     Route: 058
     Dates: start: 20181106
  4. OMEPRAZOLE. [Concomitant]
     Active Substance: OMEPRAZOLE
  5. LEVODOPA [Concomitant]
     Active Substance: LEVODOPA
     Dates: start: 20181105
  6. DILTIAZEM. [Concomitant]
     Active Substance: DILTIAZEM
  7. CHLORTHALIDONE. [Concomitant]
     Active Substance: CHLORTHALIDONE
  8. COREG [Concomitant]
     Active Substance: CARVEDILOL
  9. ALLOPURINOL. [Concomitant]
     Active Substance: ALLOPURINOL

REACTIONS (4)
  - Blood pressure increased [Unknown]
  - Somnolence [Recovered/Resolved]
  - Nausea [Recovered/Resolved]
  - Asthenia [Recovered/Resolved]

NARRATIVE: CASE EVENT DATE: 20181106
